FAERS Safety Report 8322671 (Version 11)
Quarter: 2012Q4

REPORT INFORMATION
  Report Type: 
  Country: US (occurrence: US)
  Receive Date: 20120105
  Receipt Date: 20121010
  Transmission Date: 20130627
  Serious: Yes (Hospitalization, Other)
  Sender: FDA-Public Use
  Company Number: PHEH2005US014205

PATIENT
  Age: 56 None
  Sex: Female
  Weight: 70.3 kg

DRUGS (96)
  1. ZOMETA [Suspect]
     Indication: METASTASES TO BONE
     Dosage: 4 mg, QMO
     Route: 042
     Dates: start: 200309, end: 20050203
  2. ALENDRONATE SODIUM [Suspect]
     Indication: HYPERCALCAEMIA
     Route: 042
  3. ARIMIDEX [Suspect]
  4. FEMARA [Concomitant]
     Dosage: 2.5 mg, BID
     Route: 048
     Dates: start: 200309, end: 200402
  5. LOTREL [Concomitant]
  6. TAMOXIFEN [Concomitant]
     Indication: BREAST CANCER
     Dosage: 10 mg, BID
     Route: 048
     Dates: start: 200206, end: 200309
  7. FASLODEX [Concomitant]
     Dosage: 250 mg, QMO
     Route: 042
     Dates: start: 200402, end: 200503
  8. FOSAMAX [Concomitant]
     Dosage: 20 mg, QD
     Route: 048
  9. ATENOLOL [Concomitant]
     Dosage: 50 mg, QD
     Route: 048
  10. LIPITOR /UNK/ [Concomitant]
     Dosage: 40 mg
  11. ZOLOFT [Concomitant]
     Dosage: 50 mg
  12. AMBIEN [Concomitant]
     Dosage: 10 mg
  13. HYDROCODONE [Concomitant]
  14. XANAX [Concomitant]
     Dosage: 0.25 mg
  15. FOLIC ACID [Concomitant]
     Dosage: 1 mg
  16. NEXIUM [Concomitant]
  17. IRON [Concomitant]
  18. GEMZAR [Concomitant]
     Dates: start: 200505
  19. XELODA [Concomitant]
  20. TAXOTERE [Concomitant]
  21. PROTONIX ^PHARMACIA^ [Concomitant]
  22. MULTIVITAMINS [Concomitant]
  23. CALCIMATE PLUS [Concomitant]
  24. NEULASTA [Concomitant]
  25. ZEBETA [Concomitant]
  26. MIRALAX [Concomitant]
  27. PROVOCHOLINE [Concomitant]
  28. STOOL SOFTENER [Concomitant]
  29. ZOFRAN [Concomitant]
  30. COMPAZINE [Concomitant]
  31. ALPRAZOLAM [Concomitant]
  32. DEXAMETHASONE [Concomitant]
  33. PROPOXYPHENE NAPSYLATE W/ACETAMINOPHENE [Concomitant]
  34. SILVER SULFADIAZINE [Concomitant]
  35. LEVAQUIN [Concomitant]
  36. AZITHROMYCIN [Concomitant]
  37. NYSTATIN [Concomitant]
  38. GLYCOLAX [Concomitant]
  39. HYDROCORTISONE WITH LIDOCAINE HYDROCHLORIDE [Concomitant]
  40. ACTONEL [Concomitant]
  41. POTASSIUM CHLORIDE [Concomitant]
  42. FUROSEMIDE [Concomitant]
  43. OXYCODONE/APAP [Concomitant]
  44. HYDROMORPHONE HYDROCHLORIDE [Concomitant]
  45. AROMASIN [Concomitant]
  46. SIMVASTATIN [Concomitant]
  47. EFEXOR XR [Concomitant]
  48. METRONIDAZOLE [Concomitant]
  49. FENTANYL [Concomitant]
  50. MORPHINE SULFATE [Concomitant]
  51. IODOQUINOL [Concomitant]
  52. LEXAPRO [Concomitant]
  53. CITALOPRAM HYDROBROMIDE [Concomitant]
  54. MELOXICAM [Concomitant]
  55. OMEPRAZOLE [Concomitant]
  56. MIRTAZAPINE [Concomitant]
  57. METHADONE [Concomitant]
  58. NAPROXEN [Concomitant]
  59. WELLBUTRIN XL [Concomitant]
  60. CELEBREX [Concomitant]
  61. LYRICA [Concomitant]
  62. CHOLINE MAGNESIUM TRISALICYLATE [Concomitant]
  63. GABAPENTIN [Concomitant]
  64. MEGESTROL [Concomitant]
  65. PREDNISONE [Concomitant]
  66. AVELOX [Concomitant]
  67. METOCLOPRAMIDE [Concomitant]
  68. BUPROPION [Concomitant]
  69. ONDANSETRON [Concomitant]
  70. FLUCONAZOLE [Concomitant]
  71. CEPHALEXIN [Concomitant]
  72. BETAMETHASONE DIPROPIONATE W/CLOTRIMAZOLE [Concomitant]
  73. SULFAMETHOXAZOLE W/TRIMETHOPRIM [Concomitant]
  74. CIALIS ^GLAXOSMITHKLINE^ [Concomitant]
  75. CLOTRIMAZOLE [Concomitant]
  76. MUPIROCIN [Concomitant]
  77. TERCONAZOLE [Concomitant]
  78. ZOCOR ^DIECKMANN^ [Concomitant]
  79. NEURONTIN [Concomitant]
  80. PROZAC [Concomitant]
  81. EVISTA [Concomitant]
  82. HORMONES [Concomitant]
  83. NAVELBINE ^ASTA MEDICA^ [Concomitant]
  84. DOXORUBICIN [Concomitant]
  85. GEMCITABINE [Concomitant]
  86. LETROZOLE [Concomitant]
  87. MOBIC [Concomitant]
  88. ETODOLAC [Concomitant]
  89. METHYLPREDNISOLONE [Concomitant]
  90. CIPROFLOXACIN [Concomitant]
  91. KYTRIL [Concomitant]
  92. PROCHLORPERAZINE [Concomitant]
  93. COMPRO [Concomitant]
  94. TEMAZEPAM [Concomitant]
  95. BIAFINE [Concomitant]
  96. ZOVIRAX [Concomitant]

REACTIONS (100)
  - Rectal haemorrhage [Unknown]
  - Osteonecrosis of jaw [Recovering/Resolving]
  - Haemorrhoids [Unknown]
  - Pyrexia [Unknown]
  - Night sweats [Unknown]
  - White blood cell count increased [Unknown]
  - Bone disorder [Recovering/Resolving]
  - Pain [Recovering/Resolving]
  - Tooth loss [Recovering/Resolving]
  - Eating disorder [Recovering/Resolving]
  - Oral disorder [Recovering/Resolving]
  - Osteitis [Unknown]
  - Gingival pain [Recovering/Resolving]
  - Impaired healing [Recovering/Resolving]
  - Oral mucosal exfoliation [Recovering/Resolving]
  - Oral cavity fistula [Recovering/Resolving]
  - Hypoaesthesia oral [Unknown]
  - Neuralgia [Recovering/Resolving]
  - Injury [Unknown]
  - Emotional distress [Unknown]
  - Anxiety [Unknown]
  - Physical disability [Unknown]
  - Scar [Unknown]
  - Tooth infection [Unknown]
  - Toothache [Unknown]
  - Metastases to bone [Unknown]
  - Nuclear magnetic resonance imaging abnormal [Unknown]
  - Arthralgia [Unknown]
  - Oedema peripheral [Unknown]
  - Wound infection staphylococcal [Unknown]
  - Exostosis [Unknown]
  - Mitral valve prolapse [Unknown]
  - Spinal osteoarthritis [Unknown]
  - Posture abnormal [Unknown]
  - Walking disability [Unknown]
  - Lumbar radiculopathy [Unknown]
  - Paraesthesia [Unknown]
  - Hypoaesthesia [Unknown]
  - Areflexia [Unknown]
  - Back pain [Unknown]
  - Muscular weakness [Unknown]
  - Intervertebral disc protrusion [Unknown]
  - Micturition urgency [Unknown]
  - Urinary retention [Unknown]
  - Urinary incontinence [Unknown]
  - Faecal incontinence [Unknown]
  - Rectocele [Unknown]
  - Cystocele [Unknown]
  - Staphylococcal infection [Unknown]
  - Urinary tract infection [Unknown]
  - Rectal fissure [Recovering/Resolving]
  - Rectal abscess [Unknown]
  - Proctalgia [Unknown]
  - Cellulitis [Unknown]
  - Pain in extremity [Unknown]
  - Purulent discharge [Unknown]
  - Ingrowing nail [Unknown]
  - Plantar fasciitis [Unknown]
  - Seborrhoeic keratosis [Unknown]
  - Angiofibroma [Unknown]
  - Face injury [Unknown]
  - Dysplastic naevus [Unknown]
  - Excessive granulation tissue [Unknown]
  - Lichenoid keratosis [Unknown]
  - Malignant melanoma [Unknown]
  - Haemangioma [Unknown]
  - Major depression [Unknown]
  - Varicose vein [Unknown]
  - Peripheral arterial occlusive disease [Unknown]
  - Cataract nuclear [Unknown]
  - Bronchitis [Recovered/Resolved]
  - Chronic obstructive pulmonary disease [Unknown]
  - Radiculitis [Unknown]
  - Compression fracture [Unknown]
  - Tendon disorder [Unknown]
  - Bursitis [Unknown]
  - Asthma [Unknown]
  - Hand fracture [Unknown]
  - Pain in jaw [Unknown]
  - Peroneal nerve palsy [Unknown]
  - Fall [Unknown]
  - Craniocerebral injury [Unknown]
  - Contusion [Unknown]
  - Musculoskeletal chest pain [Unknown]
  - Ecchymosis [Unknown]
  - Tenderness [Unknown]
  - Bone lesion [Unknown]
  - Arthropathy [Unknown]
  - Rib fracture [Unknown]
  - Thrombocytopenia [Unknown]
  - Hepatosplenomegaly [Unknown]
  - Thyroid disorder [Unknown]
  - Lymphocytic infiltration [Unknown]
  - Vertebral foraminal stenosis [Unknown]
  - Pelvic fracture [Unknown]
  - Atelectasis [Unknown]
  - Discomfort [Unknown]
  - Mastication disorder [Unknown]
  - Joint effusion [Unknown]
  - Hip fracture [Unknown]
